FAERS Safety Report 8801128 (Version 4)
Quarter: 2012Q4

REPORT INFORMATION
  Report Type: 
  Country: JP (occurrence: JP)
  Receive Date: 20120921
  Receipt Date: 20121217
  Transmission Date: 20130627
  Serious: Yes (Other)
  Sender: FDA-Public Use
  Company Number: JP-GLAXOSMITHKLINE-B0831833A

PATIENT
  Age: 65 Year
  Sex: Female
  Weight: 40 kg

DRUGS (2)
  1. HYCAMTIN [Suspect]
     Indication: OVARIAN CANCER RECURRENT
     Dosage: 1.275MGM2 per day
     Route: 042
     Dates: start: 20120316, end: 20120625
  2. DECADRON [Concomitant]
     Indication: PROPHYLAXIS OF NAUSEA AND VOMITING
     Dosage: 3.3MG per day
     Route: 042
     Dates: start: 20120316, end: 20120320

REACTIONS (1)
  - Anaemia [Recovering/Resolving]
